FAERS Safety Report 12272139 (Version 1)
Quarter: 2016Q2

REPORT INFORMATION
  Report Type: Spontaneous
  Country: GB (occurrence: GB)
  Receive Date: 20160415
  Receipt Date: 20160415
  Transmission Date: 20160815
  Serious: Yes (Hospitalization, Other)
  Sender: FDA-Public Use
  Company Number: GB-NORTHSTAR HEALTHCARE HOLDINGS-GB-2016NSR001390

PATIENT

DRUGS (2)
  1. BACLOFEN. [Suspect]
     Active Substance: BACLOFEN
     Indication: MUSCLE SPASTICITY
     Dosage: 60 ?G, PER 24 H
     Route: 037
  2. BACLOFEN. [Suspect]
     Active Substance: BACLOFEN
     Dosage: 460 ?G, PER 24 H
     Route: 037

REACTIONS (4)
  - Scoliosis [Recovering/Resolving]
  - Periventricular leukomalacia [Unknown]
  - Periarticular disorder [Unknown]
  - Pain [Recovering/Resolving]
